FAERS Safety Report 21835993 (Version 2)
Quarter: 2023Q1

REPORT INFORMATION
  Report Type: Spontaneous
  Country: US (occurrence: US)
  Receive Date: 20230109
  Receipt Date: 20230114
  Transmission Date: 20230417
  Serious: No
  Sender: FDA-Public Use
  Company Number: US-002147023-NVSC2023US003222

PATIENT
  Age: 60 Year
  Sex: Female

DRUGS (1)
  1. LEQVIO [Suspect]
     Active Substance: INCLISIRAN SODIUM
     Indication: Arteriosclerosis
     Dosage: 284 MG/KG (FIRST MONTH; AFTER 3 MONTHS NEXT INJECTION, THEN EVERY SIX MONTHS)
     Route: 058
     Dates: start: 20221202

REACTIONS (3)
  - Erythema [Unknown]
  - Anxiety [Unknown]
  - Blood pressure increased [Unknown]
